FAERS Safety Report 23480540 (Version 1)
Quarter: 2024Q1

REPORT INFORMATION
  Report Type: Spontaneous
  Country: NL (occurrence: NL)
  Receive Date: 20240205
  Receipt Date: 20240205
  Transmission Date: 20240410
  Serious: Yes (Hospitalization)
  Sender: FDA-Public Use
  Company Number: None

PATIENT
  Age: 41 Year
  Sex: Female
  Weight: 67.6 kg

DRUGS (3)
  1. DOXORUBICIN [Suspect]
     Active Substance: DOXORUBICIN
     Indication: Sarcoma
     Dosage: DAILY DOSE: 25 MG/M2 BODY SURFACE AREA/DOXORUBICIN INJECTION/INFUSE / BRAND NAME NOT SPECIFIED
     Route: 065
     Dates: start: 20231013
  2. IFOSFAMIDE [Suspect]
     Active Substance: IFOSFAMIDE
     Indication: Sarcoma
     Dosage: DAILY DOSE: 2.5MG/M2 ON DAYS 1,2,3,4./IFOSFAMIDE INFUUS / BRAND NAME NOT SPECIFIED
     Route: 065
     Dates: start: 20231013
  3. POTASSIUM CHLORIDE [Concomitant]
     Active Substance: POTASSIUM CHLORIDE
     Indication: Product used for unknown indication
     Dosage: 2L/24 HOURS + 80MMOL POTASSIUM CHLORIDE. IN ADDITION, PARTIAL SUPPLEMENTATION WITH POTASSIUM CHLO...

REACTIONS (1)
  - Hypokalaemia [Recovered/Resolved]
